FAERS Safety Report 5170556-2 (Version None)
Quarter: 2006Q4

REPORT INFORMATION
  Report Type: 
  Country: None (occurrence: None)
  Receive Date: 20061204
  Receipt Date: 20061122
  Transmission Date: 20070319
  Serious: Yes (Life-Threatening, Hospitalization, Other)
  Sender: FDA-Public Use
  Company Number: HQWYE392122NOV06

PATIENT
  Age: 92 Year
  Sex: Female

DRUGS (7)
  1. TRANGOREX (AMIODARONE, TABLET) [Suspect]
     Indication: ATRIAL FIBRILLATION
     Dosage: 200 MG TABLET
     Route: 048
     Dates: start: 20060315, end: 20060808
  2. TRANGOREX (AMIODARONE, TABLET) [Suspect]
     Indication: ATRIAL FLUTTER
     Dosage: 200 MG TABLET
     Route: 048
     Dates: start: 20060315, end: 20060808
  3. TENORMIN [Suspect]
     Indication: ACUTE MYOCARDIAL INFARCTION
     Dosage: 50 MG TABLET
     Route: 048
     Dates: end: 20060808
  4. COZAAR [Concomitant]
  5. FUROSEMIDE [Concomitant]
  6. UNIKET (ISOSORBIDE MONONITRATE) [Concomitant]
  7. OMEPRAZOLE [Concomitant]

REACTIONS (3)
  - ACUTE PULMONARY OEDEMA [None]
  - BRADYCARDIA [None]
  - NODAL RHYTHM [None]
